FAERS Safety Report 9541312 (Version 2)
Quarter: 2013Q4

REPORT INFORMATION
  Report Type: Report from Study
  Country: JP (occurrence: JP)
  Receive Date: 20130923
  Receipt Date: 20131126
  Transmission Date: 20140711
  Serious: Yes (Death)
  Sender: FDA-Public Use
  Company Number: JP-ROCHE-1278363

PATIENT
  Sex: Male
  Weight: 66 kg

DRUGS (19)
  1. OMALIZUMAB [Suspect]
     Indication: ASTHMA
     Route: 058
     Dates: start: 20120301
  2. OMALIZUMAB [Suspect]
     Route: 058
     Dates: start: 20120329, end: 20120331
  3. OMALIZUMAB [Suspect]
     Route: 058
     Dates: start: 20120404, end: 20120405
  4. DORIPENEM [Suspect]
     Indication: ASTHMA
     Route: 042
     Dates: start: 20120331, end: 20120404
  5. DIOVAN [Concomitant]
     Route: 065
     Dates: start: 20120301, end: 20120404
  6. SYMBICORT [Concomitant]
     Route: 065
     Dates: start: 20110901
  7. UNIPHYL [Concomitant]
     Route: 065
     Dates: start: 20110901
  8. PREDNISOLONE [Concomitant]
     Route: 065
     Dates: start: 20110901
  9. MEPTIN AIR [Concomitant]
     Route: 065
     Dates: start: 20110901
  10. SPIRIVA [Concomitant]
     Route: 065
     Dates: start: 20120301, end: 20120404
  11. FRANDOL [Concomitant]
     Route: 065
     Dates: start: 20120301
  12. KETOTEN [Concomitant]
     Route: 065
     Dates: start: 20120301, end: 20120404
  13. WARFARIN [Concomitant]
     Route: 065
     Dates: start: 20120301, end: 20120404
  14. NORVASC [Concomitant]
     Route: 065
     Dates: start: 20120301, end: 20120404
  15. ALOSITOL [Concomitant]
     Route: 065
     Dates: start: 20120301, end: 20120404
  16. OMEPRAL [Concomitant]
     Route: 065
     Dates: start: 20120301, end: 20120404
  17. SIGMART [Concomitant]
     Route: 065
     Dates: start: 20120301, end: 20120404
  18. MAGLAX [Concomitant]
     Route: 065
     Dates: start: 20120301, end: 20120404
  19. SENNARIDE [Concomitant]
     Route: 065
     Dates: start: 20120301, end: 20120404

REACTIONS (4)
  - Renal failure acute [Fatal]
  - Pneumonia [Fatal]
  - Cardiac failure [Fatal]
  - General physical health deterioration [Unknown]
